FAERS Safety Report 8085976 (Version 2)
Quarter: 2015Q1

REPORT INFORMATION
  Report Type: Spontaneous
  Country: US (occurrence: US)
  Receive Date: 20110811
  Receipt Date: 20150113
  Transmission Date: 20150721
  Serious: Yes (Hospitalization, Other)
  Sender: FDA-Public Use
  Company Number: US-ROCHE-794405

PATIENT
  Age: 16 Year
  Sex: Female

DRUGS (1)
  1. ACCUTANE [Suspect]
     Active Substance: ISOTRETINOIN
     Indication: ACNE
     Route: 065
     Dates: start: 19950304, end: 20010113

REACTIONS (7)
  - Suicidal ideation [Unknown]
  - Diverticulitis [Unknown]
  - Depression [Unknown]
  - Irritable bowel syndrome [Unknown]
  - Anxiety [Unknown]
  - Diverticular perforation [Unknown]
  - Blood triglycerides increased [Unknown]

NARRATIVE: CASE EVENT DATE: 19950616
